FAERS Safety Report 8543667-9 (Version None)
Quarter: 2012Q3

REPORT INFORMATION
  Report Type: 
  Country: None (occurrence: None)
  Receive Date: 20120727
  Receipt Date: 20120718
  Transmission Date: 20120928
  Serious: Yes (Hospitalization)
  Sender: FDA-Public Use
  Company Number: JP-PURDUE-USA-2012-0090335

PATIENT
  Sex: Male

DRUGS (3)
  1. TRAMADOL HCL [Suspect]
     Dosage: 200 MG, DAILY
     Route: 048
  2. TRAMADOL HCL [Suspect]
     Indication: PAIN
     Dosage: 100 MG, DAILY
     Route: 048
     Dates: start: 20120606, end: 20120612
  3. TRAMADOL HCL [Suspect]
     Dosage: 100 MG, DAILY
     Route: 048

REACTIONS (1)
  - BLADDER NEOPLASM [None]
